FAERS Safety Report 6006820-4 (Version None)
Quarter: 2008Q4

REPORT INFORMATION
  Report Type: 
  Country: None (occurrence: None)
  Receive Date: 20081217
  Receipt Date: 20071010
  Transmission Date: 20090506
  Serious: No
  Sender: FDA-Public Use
  Company Number: US-ASTRAZENECA-2007UW23579

PATIENT
  Age: 76 Year
  Sex: Male
  Weight: 97.5 kg

DRUGS (1)
  1. CRESTOR [Suspect]
     Route: 048

REACTIONS (3)
  - EYE PAIN [None]
  - FATIGUE [None]
  - HEADACHE [None]
